FAERS Safety Report 12115089 (Version 10)
Quarter: 2017Q1

REPORT INFORMATION
  Report Type: Spontaneous
  Country: US (occurrence: US)
  Receive Date: 20160225
  Receipt Date: 20170209
  Transmission Date: 20170428
  Serious: Yes (Life-Threatening, Congenital Anomaly, Other)
  Sender: FDA-Public Use
  Company Number: PHEH2016US004460

PATIENT
  Sex: Male

DRUGS (1)
  1. ZOFRAN ODT [Suspect]
     Active Substance: ONDANSETRON HYDROCHLORIDE
     Indication: FOETAL EXPOSURE DURING PREGNANCY
     Dosage: MOTHER^S DOSE: 8 MG,Q8H
     Route: 064

REACTIONS (40)
  - Patent ductus arteriosus [Unknown]
  - Supraventricular extrasystoles [Unknown]
  - Selective eating disorder [Unknown]
  - Wound [Unknown]
  - Foetal exposure during pregnancy [Unknown]
  - Respiratory tract infection [Unknown]
  - Arrhythmia [Unknown]
  - Rhinitis [Unknown]
  - Anxiety [Unknown]
  - Heart disease congenital [Unknown]
  - Supraventricular tachycardia [Unknown]
  - Emotional distress [Unknown]
  - Anhedonia [Unknown]
  - Thrombocytosis [Unknown]
  - Neonatal pneumonia [Unknown]
  - Injury [Unknown]
  - Asthma [Unknown]
  - Pharyngitis [Unknown]
  - Congenital aortic stenosis [Unknown]
  - Congenital hypothyroidism [Unknown]
  - Pulmonary valve incompetence [Unknown]
  - Lower respiratory tract infection [Unknown]
  - Congenital anomaly [Unknown]
  - Interruption of aortic arch [Unknown]
  - Sepsis neonatal [Unknown]
  - Postoperative renal failure [Unknown]
  - Haemorrhage neonatal [Unknown]
  - Developmental delay [Unknown]
  - Dysuria [Unknown]
  - Neutrophilia [Unknown]
  - Ventricular septal defect [Unknown]
  - Pain [Unknown]
  - Acute sinusitis [Unknown]
  - Normochromic normocytic anaemia [Unknown]
  - Microangiopathic haemolytic anaemia [Unknown]
  - Poikilocytosis [Unknown]
  - Hypertrophic cardiomyopathy [Unknown]
  - Coarctation of the aorta [Unknown]
  - Left ventricle outflow tract obstruction [Unknown]
  - Anisocytosis [Unknown]
